FAERS Safety Report 18680436 (Version 1)
Quarter: 2020Q4

REPORT INFORMATION
  Report Type: Spontaneous
  Country: CH (occurrence: CH)
  Receive Date: 20201229
  Receipt Date: 20201229
  Transmission Date: 20210114
  Serious: Yes (Other)
  Sender: FDA-Public Use
  Company Number: CH-PURDUE-USA-2020-0192382

PATIENT
  Age: 76 Year
  Sex: Male
  Weight: 55 kg

DRUGS (23)
  1. CEFTRIAXONE. [Concomitant]
     Active Substance: CEFTRIAXONE
     Indication: PROSTATITIS
     Dosage: 2 G, DAILY
     Route: 042
     Dates: start: 20201122, end: 20201127
  2. ENALAPRIL [Concomitant]
     Active Substance: ENALAPRIL
     Dosage: 5 MG, BID
     Dates: start: 20201116, end: 20201118
  3. TORASEMIDE [Concomitant]
     Active Substance: TORSEMIDE
     Dosage: 40 MG, DAILY
     Route: 048
     Dates: start: 20201127, end: 20201129
  4. HEPARINE CALCIUM [Concomitant]
     Active Substance: HEPARIN CALCIUM
     Dosage: 5000 IU, BID
     Route: 058
     Dates: start: 20201129
  5. PANTOPRAZOLE [Concomitant]
     Active Substance: PANTOPRAZOLE
     Dosage: 40 MG, DAILY
     Dates: end: 20201130
  6. PARACETAMOL [Concomitant]
     Active Substance: ACETAMINOPHEN
     Dosage: 500 MG, QID PRN
  7. CALCIUM + VITAMIN D                /09279801/ [Concomitant]
     Active Substance: CALCIUM\CHOLECALCIFEROL
     Dosage: 1000/800 MG, DAILY
  8. EPLERENONE. [Concomitant]
     Active Substance: EPLERENONE
     Dosage: 25 MG, DAILY
     Route: 048
     Dates: start: 20201121, end: 20201124
  9. FENTANYL. [Concomitant]
     Active Substance: FENTANYL
     Dosage: 12 MCG, Q1H
     Dates: start: 20201126
  10. PREGABALIN. [Suspect]
     Active Substance: PREGABALIN
     Indication: NEURALGIA
     Dosage: 25 MG, TID
     Route: 048
     Dates: start: 20201114, end: 20201130
  11. TORASEMIDE [Concomitant]
     Active Substance: TORSEMIDE
     Dosage: 10 MG, SINGLE
     Route: 048
     Dates: start: 20201124, end: 20201124
  12. TORASEMIDE [Concomitant]
     Active Substance: TORSEMIDE
     Dosage: 20 MG, SINGLE
     Route: 048
     Dates: start: 20201130, end: 20201130
  13. TORASEMIDE [Concomitant]
     Active Substance: TORSEMIDE
     Dosage: 30 MG, SINGLE
     Route: 048
     Dates: start: 20201126, end: 20201126
  14. ENALAPRIL [Concomitant]
     Active Substance: ENALAPRIL
     Dosage: 5 MG, BID
     Dates: start: 20201126, end: 20201130
  15. EPLERENONE. [Concomitant]
     Active Substance: EPLERENONE
     Dosage: 50 MG, DAILY
     Route: 048
     Dates: start: 20201125
  16. ATORVASTATIN [Concomitant]
     Active Substance: ATORVASTATIN
     Dosage: 80 MG, DAILY
     Dates: end: 20201130
  17. MST CONTINUS [Suspect]
     Active Substance: MORPHINE SULFATE
     Indication: PAIN
     Dosage: 10 MG, BID
     Route: 048
     Dates: start: 20201126, end: 20201130
  18. CEFEPIME [Suspect]
     Active Substance: CEFEPIME HYDROCHLORIDE
     Indication: PROSTATITIS
     Dosage: UNK
     Route: 041
     Dates: start: 20201127, end: 20201130
  19. CEFEPIME [Suspect]
     Active Substance: CEFEPIME HYDROCHLORIDE
     Dosage: 1 G, SINGLE
     Route: 042
     Dates: start: 20201130, end: 20201130
  20. CLOPIDOGREL [Concomitant]
     Active Substance: CLOPIDOGREL BISULFATE
     Dosage: 75 MG, DAILY
     Dates: end: 20201130
  21. ASPIRIN                            /00002701/ [Concomitant]
     Active Substance: ASPIRIN
     Dosage: 100 MG, DAILY
     Dates: end: 20201130
  22. CEFEPIME [Suspect]
     Active Substance: CEFEPIME HYDROCHLORIDE
     Dosage: 2 G, BID
     Route: 042
     Dates: start: 20201127, end: 20201129
  23. CARVEDILOL. [Concomitant]
     Active Substance: CARVEDILOL
     Dosage: 6.25 MG, DAILY
     Dates: end: 20201130

REACTIONS (1)
  - Toxic encephalopathy [Not Recovered/Not Resolved]

NARRATIVE: CASE EVENT DATE: 20201130
